FAERS Safety Report 6648694-4 (Version None)
Quarter: 2010Q1

REPORT INFORMATION
  Report Type: 
  Country: None (occurrence: None)
  Receive Date: 20100324
  Receipt Date: 20100312
  Transmission Date: 20100710
  Serious: Yes (Other)
  Sender: FDA-Public Use
  Company Number: CN-PFIZER INC-2010028299

PATIENT

DRUGS (1)
  1. SUTENT [Suspect]
     Indication: RENAL CANCER
     Dosage: UNK

REACTIONS (5)
  - BLOOD BILIRUBIN INCREASED [None]
  - BURNING SENSATION [None]
  - EYELID OEDEMA [None]
  - FACE OEDEMA [None]
  - TRANSAMINASES INCREASED [None]
